FAERS Safety Report 10432422 (Version 1)
Quarter: 2014Q3

REPORT INFORMATION
  Report Type: Spontaneous
  Country: US (occurrence: None)
  Receive Date: 20140904
  Receipt Date: 20140904
  Transmission Date: 20150326
  Serious: Yes (Other)
  Sender: FDA-Public Use
  Company Number: None

PATIENT
  Age: 71 Year

DRUGS (2)
  1. ESZOPICLONE 10MG [Suspect]
     Active Substance: ESZOPICLONE
     Dates: start: 20120530, end: 20140819
  2. ZOLPIDEM [Suspect]
     Active Substance: ZOLPIDEM\ZOLPIDEM TARTRATE
     Indication: INSOMNIA
     Dates: start: 20120529, end: 20140820

REACTIONS (4)
  - Insomnia [None]
  - Therapeutic response changed [None]
  - Product substitution issue [None]
  - Drug intolerance [None]

NARRATIVE: CASE EVENT DATE: 20140617
